FAERS Safety Report 9170646 (Version 1)
Quarter: 2013Q1

REPORT INFORMATION
  Report Type: Spontaneous
  Country: US (occurrence: None)
  Receive Date: 20130312
  Receipt Date: 20130312
  Transmission Date: 20140127
  Serious: No
  Sender: FDA-Public Use
  Company Number: CL-477-2013

PATIENT
  Age: 57 Year
  Sex: Female

DRUGS (2)
  1. CIPROFLOXACIN [Suspect]
  2. CONTRAST MEDIA [Suspect]

REACTIONS (5)
  - Red man syndrome [None]
  - Drug interaction [None]
  - Rash erythematous [None]
  - Generalised erythema [None]
  - Pruritus generalised [None]
